FAERS Safety Report 5164681-X (Version None)
Quarter: 2006Q4

REPORT INFORMATION
  Report Type: 
  Country: None (occurrence: None)
  Receive Date: 20061205
  Receipt Date: 20061204
  Transmission Date: 20070319
  Serious: Yes (Other)
  Sender: FDA-Public Use
  Company Number: US-GLAXOSMITHKLINE-A0630183A

PATIENT
  Age: 72 Year
  Sex: Female

DRUGS (2)
  1. CITRUCEL CAPLETS [Suspect]
     Indication: DIVERTICULUM
     Dosage: 2CAPL PER DAY
     Route: 048
  2. PREVACID [Suspect]

REACTIONS (3)
  - THROAT IRRITATION [None]
  - VAGINAL BURNING SENSATION [None]
  - VAGINAL HAEMORRHAGE [None]
